FAERS Safety Report 24563707 (Version 1)
Quarter: 2024Q4

REPORT INFORMATION
  Report Type: Spontaneous
  Country: US (occurrence: US)
  Receive Date: 20241030
  Receipt Date: 20241030
  Transmission Date: 20250115
  Serious: No
  Sender: CSL BEHRING
  Company Number: US-BEH-2024181980

PATIENT
  Sex: Male
  Weight: 90.703 kg

DRUGS (9)
  1. PRIVIGEN [Suspect]
     Active Substance: HUMAN IMMUNOGLOBULIN G
     Indication: Immunodeficiency common variable
     Dosage: 35 G (EVERY 4 WEEKS)
     Route: 042
  2. OMEPRAZOLE [Concomitant]
     Active Substance: OMEPRAZOLE
  3. HYDROCHLOROTHIAZIDE [Concomitant]
     Active Substance: HYDROCHLOROTHIAZIDE
  4. WELLBUTRIN XL [Concomitant]
     Active Substance: BUPROPION HYDROCHLORIDE
  5. TRICOR [Concomitant]
     Active Substance: FENOFIBRATE
  6. DIAZEPAM [Concomitant]
     Active Substance: DIAZEPAM
     Dosage: UNK
  7. NAPROXEN [Concomitant]
     Active Substance: NAPROXEN
  8. NALTREXONE [Concomitant]
     Active Substance: NALTREXONE
     Dosage: UNK
  9. ASPIRIN\METHOCARBAMOL [Concomitant]
     Active Substance: ASPIRIN\METHOCARBAMOL
     Dosage: UNK

REACTIONS (7)
  - Illness [Unknown]
  - Wrong technique in product usage process [Unknown]
  - Pyrexia [Recovered/Resolved]
  - Fatigue [Unknown]
  - Lethargy [Unknown]
  - Dysuria [Unknown]
  - Malaise [Unknown]
